FAERS Safety Report 8011274-2 (Version None)
Quarter: 2011Q4

REPORT INFORMATION
  Report Type: 
  Country: None (occurrence: None)
  Receive Date: 20111227
  Receipt Date: 20111227
  Transmission Date: 20120403
  Serious: Yes (Hospitalization)
  Sender: FDA-Public Use
  Company Number: None

PATIENT
  Sex: Female
  Weight: 83.914 kg

DRUGS (2)
  1. BONIVA [Concomitant]
  2. FOSAMAX [Suspect]
     Indication: OSTEOPENIA

REACTIONS (3)
  - FEMUR FRACTURE [None]
  - FALL [None]
  - LIMB INJURY [None]
